FAERS Safety Report 9203640 (Version 1)
Quarter: 2013Q1

REPORT INFORMATION
  Report Type: Spontaneous
  Country: CN (occurrence: None)
  Receive Date: 20130329
  Receipt Date: 20130329
  Transmission Date: 20140127
  Serious: Yes (Other)
  Sender: FDA-Public Use
  Company Number: VAL_02213_2013

PATIENT
  Sex: Female
  Weight: 52 kg

DRUGS (4)
  1. CALCITROL [Suspect]
     Route: 048
     Dates: start: 20120327, end: 201301
  2. CELLCEPT [Suspect]
     Indication: LUPUS NEPHRITIS
     Route: 048
     Dates: start: 20120327, end: 20121220
  3. PREDNISONE [Concomitant]
  4. ALFA D [Concomitant]

REACTIONS (7)
  - Protein urine present [None]
  - Drug ineffective [None]
  - Exposure during pregnancy [None]
  - Therapy cessation [None]
  - Benign hydatidiform mole [None]
  - Joint swelling [None]
  - Abortion induced [None]
